FAERS Safety Report 7109138-1 (Version None)
Quarter: 2010Q4

REPORT INFORMATION
  Report Type: 
  Country: None (occurrence: None)
  Receive Date: 20101117
  Receipt Date: 20101115
  Transmission Date: 20110411
  Serious: Yes (Hospitalization)
  Sender: FDA-Public Use
  Company Number: ES-PFIZER INC-2010109830

PATIENT
  Age: 56 Year

DRUGS (6)
  1. ALDACTONE [Suspect]
     Indication: CIRRHOSIS ALCOHOLIC
     Dosage: 100 MG, DAILY
     Route: 048
     Dates: start: 20070724, end: 20080915
  2. REGULATEN [Interacting]
     Indication: HYPERTENSION
     Dosage: 600 MG, DAILY
     Route: 048
     Dates: end: 20080915
  3. SEGURIL [Interacting]
     Indication: CIRRHOSIS ALCOHOLIC
     Dosage: 40 MG, DAILY
     Route: 048
     Dates: start: 20070724, end: 20080915
  4. SEROPRAM [Interacting]
     Dosage: 20 MG, DAILY
     Route: 048
     Dates: start: 20020101
  5. HIDROXIL B12 B6 B1 [Concomitant]
     Dosage: UNK
     Route: 048
     Dates: start: 20070724, end: 20080915
  6. SUMIAL [Concomitant]
     Indication: CIRRHOSIS ALCOHOLIC
     Dosage: 10 MG, DAILY
     Route: 048
     Dates: start: 20070724, end: 20080915

REACTIONS (2)
  - DRUG INTERACTION [None]
  - HEPATIC ENCEPHALOPATHY [None]
